FAERS Safety Report 6149784-5 (Version None)
Quarter: 2009Q2

REPORT INFORMATION
  Report Type: 
  Country: None (occurrence: None)
  Receive Date: 20090402
  Receipt Date: 20081119
  Transmission Date: 20091009
  Serious: Yes (Other)
  Sender: FDA-Public Use
  Company Number: 2008SU0283

PATIENT
  Sex: Female

DRUGS (4)
  1. SULAR [Suspect]
     Indication: HYPERTENSION
     Dosage: 17MG, DAILY25.5MG, DAILY
     Dates: start: 20081111, end: 20081111
  2. SULAR [Suspect]
     Indication: HYPERTENSION
     Dates: start: 20081112
  3. LEVOXYL [Concomitant]
  4. ASPIRIN [Concomitant]

REACTIONS (1)
  - DRUG INEFFECTIVE [None]
